FAERS Safety Report 7634155-2 (Version None)
Quarter: 2011Q3

REPORT INFORMATION
  Report Type: 
  Country: None (occurrence: None)
  Receive Date: 20110725
  Receipt Date: 20110721
  Transmission Date: 20111222
  Serious: No
  Sender: FDA-Public Use
  Company Number: US-PFIZER INC-2011165873

PATIENT
  Age: 45 Year
  Sex: Male

DRUGS (2)
  1. PRISTIQ [Suspect]
     Dosage: 150 MG
  2. EFFEXOR [Suspect]
     Dosage: UNK

REACTIONS (1)
  - DRUG INEFFECTIVE [None]
